FAERS Safety Report 16478275 (Version 1)
Quarter: 2019Q2

REPORT INFORMATION
  Report Type: Report from Study
  Country: US (occurrence: US)
  Receive Date: 20190626
  Receipt Date: 20190626
  Transmission Date: 20190711
  Serious: Yes (Hospitalization)
  Sender: FDA-Public Use
  Company Number: US-GILEAD-2019-0415268

PATIENT
  Age: 53 Year
  Sex: Female

DRUGS (2)
  1. TERBUTALINE [Concomitant]
     Active Substance: TERBUTALINE
  2. AMBRISENTAN [Suspect]
     Active Substance: AMBRISENTAN
     Indication: PULMONARY ARTERIAL HYPERTENSION
     Dosage: 5 MG, QD
     Route: 065

REACTIONS (3)
  - Asthma [Not Recovered/Not Resolved]
  - Skin ulcer [Not Recovered/Not Resolved]
  - Localised infection [Not Recovered/Not Resolved]

NARRATIVE: CASE EVENT DATE: 20190623
